FAERS Safety Report 22955954 (Version 4)
Quarter: 2023Q4

REPORT INFORMATION
  Report Type: Report from Study
  Country: JP (occurrence: JP)
  Receive Date: 20230919
  Receipt Date: 20231122
  Transmission Date: 20240110
  Serious: Yes (Other)
  Sender: FDA-Public Use
  Company Number: JP-JNJFOC-20230933293

PATIENT
  Age: 51 Year
  Sex: Male
  Weight: 69.5 kg

DRUGS (16)
  1. SIRTURO [Suspect]
     Active Substance: BEDAQUILINE FUMARATE
     Indication: Pulmonary tuberculosis
     Route: 048
     Dates: start: 20220503, end: 20220516
  2. SIRTURO [Suspect]
     Active Substance: BEDAQUILINE FUMARATE
     Indication: Pulmonary tuberculosis
     Route: 048
     Dates: start: 20220517, end: 20230829
  3. AMINOSALICYLATE CALCIUM [Suspect]
     Active Substance: AMINOSALICYLATE CALCIUM
     Indication: Pulmonary tuberculosis
     Route: 048
     Dates: start: 20220411
  4. ETHIONAMIDE [Suspect]
     Active Substance: ETHIONAMIDE
     Indication: Pulmonary tuberculosis
     Route: 048
     Dates: start: 20220411
  5. LEVOFLOXACIN HEMIHYDRATE [Suspect]
     Active Substance: LEVOFLOXACIN
     Indication: Pulmonary tuberculosis
     Route: 048
     Dates: start: 20220411
  6. PYRAZINAMIDE [Concomitant]
     Active Substance: PYRAZINAMIDE
     Indication: Pulmonary tuberculosis
     Route: 048
     Dates: start: 20220411
  7. ETHAMBUTOL HYDROCHLORIDE [Concomitant]
     Active Substance: ETHAMBUTOL HYDROCHLORIDE
     Indication: Pulmonary tuberculosis
     Route: 048
     Dates: start: 20220411
  8. CYCLOSERINE [Concomitant]
     Active Substance: CYCLOSERINE
     Indication: Pulmonary tuberculosis
     Route: 048
     Dates: start: 20220501, end: 20220920
  9. DELAMANID [Concomitant]
     Active Substance: DELAMANID
     Indication: Pulmonary tuberculosis
     Route: 048
     Dates: start: 20220511, end: 20230828
  10. LAMISIL [Concomitant]
     Active Substance: TERBINAFINE HYDROCHLORIDE
     Indication: Dermatophytosis of nail
     Route: 065
     Dates: end: 20220529
  11. FEBUXOSTAT [Concomitant]
     Active Substance: FEBUXOSTAT
     Indication: Hyperuricaemia
     Route: 048
     Dates: start: 20220503, end: 20220517
  12. FEBUXOSTAT [Concomitant]
     Active Substance: FEBUXOSTAT
     Indication: Hyperuricaemia
     Route: 048
     Dates: start: 20220518
  13. ACETAMINOPHEN\TRAMADOL HYDROCHLORIDE [Concomitant]
     Active Substance: ACETAMINOPHEN\TRAMADOL HYDROCHLORIDE
     Indication: Back pain
     Route: 048
     Dates: start: 20220725
  14. LEVOTHYROXINE SODIUM [Concomitant]
     Active Substance: LEVOTHYROXINE SODIUM
     Indication: Hypothyroidism
     Route: 048
     Dates: start: 20230427
  15. VONOPRAZAN FUMARATE [Concomitant]
     Active Substance: VONOPRAZAN FUMARATE
     Indication: Gastrooesophageal reflux disease
     Route: 048
     Dates: start: 20221129, end: 20230829
  16. ELOBIXIBAT [Concomitant]
     Active Substance: ELOBIXIBAT
     Indication: Constipation
     Route: 048
     Dates: start: 20220518, end: 20230512

REACTIONS (3)
  - Hypothyroidism [Not Recovered/Not Resolved]
  - Constipation [Recovered/Resolved]
  - Gastrooesophageal reflux disease [Recovered/Resolved]

NARRATIVE: CASE EVENT DATE: 20220518
